FAERS Safety Report 12075149 (Version 1)
Quarter: 2016Q1

REPORT INFORMATION
  Report Type: Spontaneous
  Country: BR (occurrence: BR)
  Receive Date: 20160212
  Receipt Date: 20160212
  Transmission Date: 20160526
  Serious: Yes (Congenital Anomaly, Other)
  Sender: FDA-Public Use
  Company Number: PHHY2016BR018375

PATIENT

DRUGS (1)
  1. ACETYLSALICYLIC ACID [Suspect]
     Active Substance: ASPIRIN
     Indication: FOETAL EXPOSURE DURING PREGNANCY
     Dosage: MATERNAL DOSE: 500 MG, QD, FOR 3 DAYS
     Route: 064

REACTIONS (5)
  - Foetal exposure during pregnancy [Unknown]
  - Dilatation ventricular [Recovered/Resolved]
  - Tricuspid valve incompetence [Recovered/Resolved]
  - Ductus arteriosus premature closure [Recovered/Resolved]
  - Pulmonary hypertension [Recovered/Resolved]
